FAERS Safety Report 8164314-4 (Version None)
Quarter: 2012Q1

REPORT INFORMATION
  Report Type: 
  Country: None (occurrence: None)
  Receive Date: 20120224
  Receipt Date: 20120216
  Transmission Date: 20120608
  Serious: Yes (Hospitalization)
  Sender: FDA-Public Use
  Company Number: US-TEVA-320709USA

PATIENT
  Sex: Female
  Weight: 51 kg

DRUGS (12)
  1. ACETAMINOPHEN [Concomitant]
  2. PREDNISONE TAB [Concomitant]
  3. METHADONE HCL [Concomitant]
  4. RITUXIMAB [Suspect]
  5. NEURONTIN [Concomitant]
  6. SOLU-MEDROL [Concomitant]
  7. NEULASTA [Concomitant]
  8. DIPHENHYDRAMINE HCL [Concomitant]
     Dates: start: 20120123
  9. TREANDA [Suspect]
     Indication: B-CELL LYMPHOMA
     Route: 042
     Dates: start: 20111101
  10. DILAUDID [Concomitant]
  11. PALONOSETRON [Concomitant]
  12. LOVENOX [Concomitant]

REACTIONS (8)
  - ASTHENIA [None]
  - RHABDOMYOLYSIS [None]
  - PAIN [None]
  - PARAESTHESIA [None]
  - DYSPNOEA [None]
  - FATIGUE [None]
  - URINE COLOUR ABNORMAL [None]
  - MYALGIA [None]
